FAERS Safety Report 13666902 (Version 1)
Quarter: 2017Q2

REPORT INFORMATION
  Report Type: Spontaneous
  Country: US (occurrence: US)
  Receive Date: 20170619
  Receipt Date: 20170619
  Transmission Date: 20170830
  Serious: No
  Sender: FDA-Public Use
  Company Number: US-ROCHE-625886

PATIENT
  Age: 55 Year
  Sex: Male
  Weight: 67.6 kg

DRUGS (4)
  1. XELODA [Suspect]
     Active Substance: CAPECITABINE
     Indication: HEAD AND NECK CANCER
     Dosage: TWO TABLETS OF 500 MG IN AM AND TWO TABLETS OF 500 MG IN PM 7 DAYS ON AND 7 DAYS OFF
     Route: 065
  2. GABAPENTIN. [Concomitant]
     Active Substance: GABAPENTIN
     Route: 065
  3. ASPIRIN. [Concomitant]
     Active Substance: ASPIRIN
     Dosage: DRUG NAME REPORTED AS BABY ASPIRIN
     Route: 065
  4. SIMVASTATIN. [Concomitant]
     Active Substance: SIMVASTATIN
     Route: 065

REACTIONS (2)
  - Gastrooesophageal reflux disease [Recovering/Resolving]
  - Arthropod bite [Recovered/Resolved]

NARRATIVE: CASE EVENT DATE: 20090402
